FAERS Safety Report 6557594-X (Version None)
Quarter: 2010Q1

REPORT INFORMATION
  Report Type: 
  Country: None (occurrence: None)
  Receive Date: 20100129
  Receipt Date: 20100105
  Transmission Date: 20100710
  Serious: Yes (Other)
  Sender: FDA-Public Use
  Company Number: PHEH2010US01460

PATIENT
  Sex: Male

DRUGS (6)
  1. TEGRETOL [Suspect]
     Dosage: 200 MG, UNK
  2. LAMICTAL [Concomitant]
  3. PHENOBARBITAL SRT [Concomitant]
  4. ZYPREXA [Concomitant]
  5. ATIVAN [Concomitant]
  6. ARTANE [Concomitant]

REACTIONS (1)
  - CONVULSION [None]
